FAERS Safety Report 25662959 (Version 1)
Quarter: 2025Q3

REPORT INFORMATION
  Report Type: Spontaneous
  Country: EU (occurrence: EU)
  Receive Date: 20250811
  Receipt Date: 20250811
  Transmission Date: 20251021
  Serious: Yes (Other)
  Sender: CELLTRION
  Company Number: None

PATIENT

DRUGS (3)
  1. YUFLYMA [Suspect]
     Active Substance: ADALIMUMAB-AATY
     Indication: Ankylosing spondylitis
     Route: 058
     Dates: start: 20240212, end: 20241102
  2. YUFLYMA [Suspect]
     Active Substance: ADALIMUMAB-AATY
  3. DESOGESTREL [Concomitant]
     Active Substance: DESOGESTREL

REACTIONS (2)
  - Paradoxical psoriasis [Not Recovered/Not Resolved]
  - Erythema nodosum [Not Recovered/Not Resolved]

NARRATIVE: CASE EVENT DATE: 20241028
